FAERS Safety Report 19318068 (Version 1)
Quarter: 2021Q2

REPORT INFORMATION
  Report Type: Spontaneous
  Country: US (occurrence: US)
  Receive Date: 20210527
  Receipt Date: 20210527
  Transmission Date: 20210717
  Serious: No
  Sender: FDA-Public Use
  Company Number: US-DRREDDYS-USA/USA/21/0135735

PATIENT
  Age: 73 Year
  Sex: Male
  Weight: 72 kg

DRUGS (2)
  1. HABITROL [Suspect]
     Active Substance: NICOTINE
     Indication: TOBACCO USER
     Route: 062
     Dates: start: 2019, end: 2019
  2. HABITROL [Suspect]
     Active Substance: NICOTINE
     Route: 062
     Dates: start: 202105

REACTIONS (3)
  - Expired product administered [Unknown]
  - Product quality issue [Unknown]
  - Drug ineffective [Unknown]
